FAERS Safety Report 4601333-6 (Version None)
Quarter: 2005Q1

REPORT INFORMATION
  Report Type: 
  Country: None (occurrence: None)
  Receive Date: 20050308
  Receipt Date: 20050209
  Transmission Date: 20050727
  Serious: Yes (Hospitalization)
  Sender: FDA-Public Use
  Company Number: IE-BRISTOL-MYERS SQUIBB COMPANY-12856738

PATIENT
  Age: 48 Year
  Sex: Female
  Weight: 58 kg

DRUGS (11)
  1. PACLITAXEL [Suspect]
     Indication: BREAST CANCER
     Route: 042
     Dates: start: 20050202, end: 20050202
  2. CYCLOPHOSPHAMIDE [Suspect]
     Indication: BREAST CANCER
     Route: 042
     Dates: start: 20050112, end: 20050112
  3. EPIRUBICIN [Suspect]
     Indication: BREAST CANCER
     Route: 042
     Dates: start: 20050112, end: 20050112
  4. DEXAMETHASONE [Concomitant]
     Dates: start: 20050202
  5. ZOFRAN [Concomitant]
     Dates: start: 20050203
  6. PROFLAM [Concomitant]
     Dates: start: 20050203
  7. MOTILIUM [Concomitant]
     Dates: start: 20050202
  8. PROTHIADEN [Concomitant]
  9. ZYDOL [Concomitant]
  10. STILNOCT [Concomitant]
  11. VENTOLIN [Concomitant]

REACTIONS (1)
  - HERPES SIMPLEX [None]
